FAERS Safety Report 18366232 (Version 1)
Quarter: 2020Q4

REPORT INFORMATION
  Report Type: Spontaneous
  Country: BE (occurrence: BE)
  Receive Date: 20201009
  Receipt Date: 20201009
  Transmission Date: 20210114
  Serious: Yes (Death)
  Sender: FDA-Public Use
  Company Number: BE-PFIZER INC-2020388311

PATIENT
  Age: 63 Year
  Sex: Male

DRUGS (1)
  1. BESPONSA [Suspect]
     Active Substance: INOTUZUMAB OZOGAMICIN
     Indication: ACUTE LYMPHOCYTIC LEUKAEMIA RECURRENT
     Dosage: UNK, CYCLIC (SALVAGE 2 THERAPY (2 CYCLES))
     Dates: start: 201908

REACTIONS (1)
  - Death [Fatal]

NARRATIVE: CASE EVENT DATE: 20200103
